FAERS Safety Report 6574254-X (Version None)
Quarter: 2010Q1

REPORT INFORMATION
  Report Type: 
  Country: None (occurrence: None)
  Receive Date: 20100201
  Receipt Date: 20100115
  Transmission Date: 20100710
  Serious: Yes (Hospitalization)
  Sender: FDA-Public Use
  Company Number: DSA_42478_2010

PATIENT
  Age: 60 Year
  Sex: Female

DRUGS (4)
  1. DILTIAZEM HYDROCHLORIDE [Suspect]
     Indication: HYPERTENSION
     Dosage: (10 DOSAGE  FORM; 300 MG AT ONE TIME ORAL), (DF ORAL)
     Route: 048
  2. LISINOPRIL HYDROCHLORTHIAZID [Concomitant]
  3. TAHOR [Concomitant]
  4. CALTRATE + D /00944201/ [Concomitant]

REACTIONS (3)
  - INCORRECT DOSE ADMINISTERED [None]
  - SUICIDE ATTEMPT [None]
  - VERTIGO [None]
